FAERS Safety Report 9274452 (Version 7)
Quarter: 2014Q1

REPORT INFORMATION
  Report Type: Report from Study
  Country: CA (occurrence: CA)
  Receive Date: 20130507
  Receipt Date: 20140226
  Transmission Date: 20141002
  Serious: Yes (Hospitalization, Other)
  Sender: FDA-Public Use
  Company Number: CA-ROCHE-1118611

PATIENT
  Age: 71 Year
  Sex: Male
  Weight: 84 kg

DRUGS (8)
  1. ACTEMRA [Suspect]
     Indication: RHEUMATOID ARTHRITIS
     Route: 042
     Dates: start: 20120118
  2. ACTEMRA [Suspect]
     Route: 042
     Dates: start: 20120322
  3. ACTEMRA [Suspect]
     Route: 042
     Dates: start: 20130502
  4. METHOTREXATE [Concomitant]
  5. PREDNISONE [Concomitant]
  6. ARTHROTEC FORTE [Concomitant]
  7. RISEDRONATE [Concomitant]
  8. RABEPRAZOLE [Concomitant]

REACTIONS (11)
  - Cardiac failure congestive [Unknown]
  - Pericardial effusion [Unknown]
  - Oedema peripheral [Not Recovered/Not Resolved]
  - Diarrhoea infectious [Not Recovered/Not Resolved]
  - Hepatitis [Not Recovered/Not Resolved]
  - Pilonidal cyst [Not Recovered/Not Resolved]
  - Atrial flutter [Recovering/Resolving]
  - Pilonidal cyst [Unknown]
  - Weight increased [Not Recovered/Not Resolved]
  - Hepatic enzyme increased [Unknown]
  - Viral infection [Unknown]
